FAERS Safety Report 9251448 (Version 1)
Quarter: 2013Q1

REPORT INFORMATION
  Report Type: Spontaneous
  Country: US (occurrence: None)
  Receive Date: 20130305
  Receipt Date: 20130305
  Transmission Date: 20140127
  Serious: Yes (Other)
  Sender: FDA-Public Use
  Company Number: 163-21880-12100380

PATIENT
  Age: 67 Year
  Sex: Female
  Weight: 93.44 kg

DRUGS (7)
  1. REVLIMID [Suspect]
     Indication: PLASMA CELL MYELOMA
     Dosage: 15 MG, 21 IN 21 D, PO
     Route: 048
     Dates: start: 200905
  2. BUMEX (BUMETANIDE) (TABLETS) [Concomitant]
     Dosage: PO
     Route: 048
  3. CENTRUM SILVER (CENTRUM SILVER) (TABLETS) [Concomitant]
     Dosage: PO
     Route: 048
  4. DEXAMETHASONE (DEXAMETHASONE) (UNKNOWN) [Concomitant]
  5. GABAPENTIN (GABAPENTIN) (UNKNOWN) (GABAPENTIN) [Concomitant]
  6. ZOLOFT (SERTRALINE HYDROCHLORIDE) (TABLETS) [Concomitant]
     Dosage: PO
     Route: 048
  7. MELOXICAM (MELOXICAM) (TABLETS) [Concomitant]
     Dosage: PO
     Route: 048

REACTIONS (3)
  - Hypoaesthesia [None]
  - Paraesthesia [None]
  - Muscle spasms [None]
